FAERS Safety Report 17678790 (Version 3)
Quarter: 2025Q4

REPORT INFORMATION
  Report Type: Spontaneous
  Country: CA (occurrence: CA)
  Receive Date: 20200417
  Receipt Date: 20251113
  Transmission Date: 20260118
  Serious: Yes (Death, Other)
  Sender: MERCK SHARP & DOHME LLC
  Company Number: None

PATIENT

DRUGS (3)
  1. KEYTRUDA [Suspect]
     Active Substance: PEMBROLIZUMAB
     Indication: Non-small cell lung cancer metastatic
     Dosage: DOSE DESCRIPTION : 2MG/KG BODYWEIGHT EVERY 3 WEEKS?DAILY DOSE : 0.094 MILLIGRAM/KILOGRAM?REGIMEN ...
     Route: 065
  2. NIVOLUMAB [Suspect]
     Active Substance: NIVOLUMAB
     Indication: Non-small cell lung cancer metastatic
     Dosage: DOSE DESCRIPTION : DOSAGE FORM: SOLUTION INTRAVENOUS
     Route: 065
  3. ATEZOLIZUMAB [Suspect]
     Active Substance: ATEZOLIZUMAB
     Indication: Non-small cell lung cancer metastatic
     Dosage: DOSE DESCRIPTION : ROUTE: INTRAVENOUS DRIP
     Route: 041

REACTIONS (5)
  - Immune-mediated adverse reaction [Unknown]
  - Hepatitis [Fatal]
  - Colitis [Fatal]
  - Pneumonitis [Fatal]
  - Nausea [Unknown]
